FAERS Safety Report 7994211-6 (Version None)
Quarter: 2011Q4

REPORT INFORMATION
  Report Type: 
  Country: None (occurrence: None)
  Receive Date: 20111220
  Receipt Date: 20111012
  Transmission Date: 20120403
  Serious: Yes (Hospitalization)
  Sender: FDA-Public Use
  Company Number: US-GLAXOSMITHKLINE-B0757245A

PATIENT
  Sex: Female

DRUGS (2)
  1. ALLERGY MEDICATION [Concomitant]
  2. PROPAFENONE HCL [Suspect]
     Indication: PRODUCT USED FOR UNKNOWN INDICATION
     Route: 065

REACTIONS (2)
  - SYNCOPE [None]
  - DRUG INEFFECTIVE [None]
